FAERS Safety Report 13904445 (Version 2)
Quarter: 2017Q3

REPORT INFORMATION
  Report Type: Spontaneous
  Country: JP (occurrence: JP)
  Receive Date: 20170825
  Receipt Date: 20170902
  Transmission Date: 20171127
  Serious: Yes (Other)
  Sender: FDA-Public Use
  Company Number: JP-AMGEN-JPNSP2017129435

PATIENT
  Age: 51 Year
  Sex: Female

DRUGS (6)
  1. ERIBULIN MESILATE [Suspect]
     Active Substance: ERIBULIN
     Indication: PHYLLODES TUMOUR
     Dosage: UNK
     Route: 042
  2. GRAN [Suspect]
     Active Substance: FILGRASTIM
     Indication: NEUTROPHIL COUNT DECREASED
     Dosage: UNK
     Route: 065
  3. G-LASTA [Suspect]
     Active Substance: PEGFILGRASTIM
     Indication: PRODUCT USED FOR UNKNOWN INDICATION
     Dosage: UNK
     Route: 058
  4. DOXORUBICIN HYDROCHLORIDE. [Suspect]
     Active Substance: DOXORUBICIN HYDROCHLORIDE
     Indication: PHYLLODES TUMOUR
     Dosage: UNK
     Route: 041
  5. IFOSFAMIDE. [Suspect]
     Active Substance: IFOSFAMIDE
     Indication: PHYLLODES TUMOUR
     Dosage: UNK
     Route: 041
  6. DENOSUMAB [Concomitant]
     Active Substance: DENOSUMAB
     Dosage: UNK
     Route: 058

REACTIONS (11)
  - Altered state of consciousness [Unknown]
  - Febrile neutropenia [Unknown]
  - Pyrexia [Unknown]
  - Pneumonia [Unknown]
  - Rash [Unknown]
  - Neutrophil count decreased [Unknown]
  - Colony stimulating factor therapy [Unknown]
  - Tumour haemorrhage [Unknown]
  - Back pain [Unknown]
  - Anaemia [Unknown]
  - Decreased appetite [Unknown]
